FAERS Safety Report 8352697-1 (Version None)
Quarter: 2012Q2

REPORT INFORMATION
  Report Type: 
  Country: None (occurrence: None)
  Receive Date: 20120511
  Receipt Date: 20120504
  Transmission Date: 20120825
  Serious: Yes (Other)
  Sender: FDA-Public Use
  Company Number: US-BAYER-2012-010014

PATIENT
  Age: 24 Year
  Sex: Female
  Weight: 58.957 kg

DRUGS (2)
  1. YAZ [Suspect]
     Dosage: UNK
     Dates: end: 20060101
  2. YASMIN [Suspect]
     Dosage: UNK
     Dates: end: 20080701

REACTIONS (6)
  - SCAR [None]
  - ANXIETY [None]
  - CHOLELITHIASIS [None]
  - EMOTIONAL DISTRESS [None]
  - GENERAL PHYSICAL HEALTH DETERIORATION [None]
  - PAIN [None]
